FAERS Safety Report 17609034 (Version 4)
Quarter: 2024Q3

REPORT INFORMATION
  Report Type: Spontaneous
  Country: IT (occurrence: IT)
  Receive Date: 20200401
  Receipt Date: 20240926
  Transmission Date: 20241017
  Serious: Yes (Life-Threatening, Hospitalization, Congenital Anomaly, Other)
  Sender: AUROBINDO
  Company Number: IT-MLMSERVICE-20200317-2211218-1

PATIENT
  Age: 33 Week
  Sex: Female
  Weight: 2.021 kg

DRUGS (9)
  1. ACETAMINOPHEN [Interacting]
     Active Substance: ACETAMINOPHEN
     Indication: Headache
     Dosage: 2 GRAM, ONCE A DAY (IN THE FIRST TRIMESTER)
     Route: 064
  2. ACETAMINOPHEN [Interacting]
     Active Substance: ACETAMINOPHEN
     Dosage: 1 GRAM (OCCASIONALLY IN THE SECOND AND THIRD TRIMESTER)
     Route: 064
  3. ACETAMINOPHEN [Interacting]
     Active Substance: ACETAMINOPHEN
     Dosage: 2 GRAM (OCCASIONALLY IN THE SECOND AND THIRD TRIMESTER)
     Route: 064
  4. ACETAMINOPHEN [Interacting]
     Active Substance: ACETAMINOPHEN
     Dosage: 4 GRAM, ONCE A DAY (IN THE FIRST TRIMESTER)
     Route: 064
  5. ACETAMINOPHEN [Interacting]
     Active Substance: ACETAMINOPHEN
     Dosage: 2-4 GRAM DAILY, IN THE FIRST TRIMESTER
     Route: 064
  6. SERTRALINE [Interacting]
     Active Substance: SERTRALINE HYDROCHLORIDE
     Indication: Panic attack
     Dosage: 25 MILLIGRAM, ONCE A DAY (DURING PREGNANCY)
     Route: 064
  7. DIAZEPAM [Suspect]
     Active Substance: DIAZEPAM
     Indication: Panic attack
     Dosage: 2 MILLIGRAM, ONCE A DAY
     Route: 064
  8. DIAZEPAM [Suspect]
     Active Substance: DIAZEPAM
     Dosage: 1 MILLIGRAM, ONCE A DAY
     Route: 064
  9. LORAZEPAM [Suspect]
     Active Substance: LORAZEPAM
     Indication: Panic attack
     Dosage: 10 GTT DROPS, ONCE A DAY
     Route: 064

REACTIONS (14)
  - Ductus arteriosus premature closure [Recovered/Resolved]
  - Cardiomegaly [Recovered/Resolved]
  - Foetal exposure during pregnancy [Recovered/Resolved]
  - Drug interaction [Recovered/Resolved]
  - Right ventricular hypertrophy [Recovered/Resolved]
  - Right ventricular dilatation [Recovered/Resolved]
  - Hypoxia [Recovered/Resolved]
  - Cardiac dysfunction [Recovered/Resolved]
  - Pulmonary valve incompetence [Unknown]
  - Pulmonary hypertension [Recovered/Resolved]
  - Tricuspid valve incompetence [Recovered/Resolved]
  - Newborn persistent pulmonary hypertension [Unknown]
  - Premature baby [Unknown]
  - Neonatal hypoxia [Unknown]
